FAERS Safety Report 18797924 (Version 1)
Quarter: 2021Q1

REPORT INFORMATION
  Report Type: Spontaneous
  Country: SK (occurrence: SK)
  Receive Date: 20210128
  Receipt Date: 20210128
  Transmission Date: 20210419
  Serious: Yes (Hospitalization)
  Sender: FDA-Public Use
  Company Number: SK-ABBVIE-21K-260-3747018-00

PATIENT
  Sex: Female

DRUGS (1)
  1. HUMIRA [Suspect]
     Active Substance: ADALIMUMAB
     Indication: HIDRADENITIS
     Route: 058

REACTIONS (5)
  - Hidradenitis [Unknown]
  - Pulmonary embolism [Recovering/Resolving]
  - COVID-19 [Recovering/Resolving]
  - Weight increased [Unknown]
  - Cardiac failure chronic [Recovering/Resolving]
